FAERS Safety Report 17233163 (Version 1)
Quarter: 2020Q1

REPORT INFORMATION
  Report Type: Spontaneous
  Country: NL (occurrence: NL)
  Receive Date: 20200104
  Receipt Date: 20200104
  Transmission Date: 20200409
  Serious: Yes (Other)
  Sender: FDA-Public Use
  Company Number: NL-TEVA-2019-NL-1160372

PATIENT
  Sex: Female
  Weight: 82 kg

DRUGS (1)
  1. VALPROINEZUUR MAAGSAPRESISTENTE TABLET, 600 MG (MILLIGRAM) [Suspect]
     Active Substance: VALPROIC ACID
     Indication: MOOD ALTERED
     Dosage: 1 X PER DAY
     Dates: start: 20100311

REACTIONS (1)
  - Polycythaemia vera [Not Recovered/Not Resolved]
